FAERS Safety Report 8710244 (Version 2)
Quarter: 2013Q1

REPORT INFORMATION
  Report Type: Spontaneous
  Country: US (occurrence: US)
  Receive Date: 20120807
  Receipt Date: 20130110
  Transmission Date: 20140127
  Serious: No
  Sender: FDA-Public Use
  Company Number: US-009507513-1208USA001572

PATIENT
  Sex: Female

DRUGS (7)
  1. NASONEX [Suspect]
     Indication: SINUS DISORDER
     Dosage: UNK
     Route: 045
     Dates: start: 20120725, end: 20120802
  2. AMOXICLAV [Concomitant]
  3. PROAIR (PROCATEROL HYDROCHLORIDE) [Concomitant]
  4. PREMARIN [Concomitant]
  5. GLIMEPIRIDE [Concomitant]
  6. LISINOPRIL [Concomitant]
  7. ATORVASTATIN [Concomitant]

REACTIONS (2)
  - Anosmia [Recovering/Resolving]
  - Ageusia [Recovering/Resolving]
